FAERS Safety Report 7459251-4 (Version None)
Quarter: 2011Q2

REPORT INFORMATION
  Report Type: 
  Country: None (occurrence: None)
  Receive Date: 20110505
  Receipt Date: 20110421
  Transmission Date: 20111010
  Serious: Yes (Hospitalization)
  Sender: FDA-Public Use
  Company Number: US-JNJFOC-20110106398

PATIENT
  Sex: Male
  Weight: 30.8 kg

DRUGS (14)
  1. IMURAN [Suspect]
     Indication: CROHN'S DISEASE
  2. ZINC SULFATE [Concomitant]
  3. AZATHIOPRINE [Concomitant]
  4. PREDNISOLONE [Concomitant]
  5. REMICADE [Suspect]
     Route: 042
  6. SULFASALAZINE [Concomitant]
  7. PROBIOTICS [Concomitant]
  8. FLAGYL [Concomitant]
  9. IRON [Concomitant]
  10. FOLATE [Concomitant]
  11. REMICADE [Suspect]
     Indication: CROHN'S DISEASE
     Route: 042
  12. OMEPRAZOLE [Concomitant]
  13. MULTI-VITAMINS [Concomitant]
  14. ANTIBIOTICS [Concomitant]
     Indication: CROHN'S DISEASE

REACTIONS (1)
  - VARICELLA [None]
